FAERS Safety Report 21178995 (Version 7)
Quarter: 2025Q1

REPORT INFORMATION
  Report Type: Report from Study
  Country: CA (occurrence: CA)
  Receive Date: 20220805
  Receipt Date: 20250106
  Transmission Date: 20250408
  Serious: Yes (Other)
  Sender: TAKEDA
  Company Number: CA-TAKEDA-2022TUS051243

PATIENT
  Age: 64 Year
  Sex: Male

DRUGS (8)
  1. VEDOLIZUMAB [Suspect]
     Active Substance: VEDOLIZUMAB
     Indication: Crohn^s disease
  2. VEDOLIZUMAB [Suspect]
     Active Substance: VEDOLIZUMAB
     Dosage: 300 MILLIGRAM, Q4WEEKS
     Dates: start: 20220602
  3. VEDOLIZUMAB [Suspect]
     Active Substance: VEDOLIZUMAB
  4. VEDOLIZUMAB [Suspect]
     Active Substance: VEDOLIZUMAB
  5. VEDOLIZUMAB [Suspect]
     Active Substance: VEDOLIZUMAB
     Dosage: 300 MILLIGRAM, Q4WEEKS
     Dates: start: 20230707
  6. VEDOLIZUMAB [Suspect]
     Active Substance: VEDOLIZUMAB
     Dosage: 300 MILLIGRAM, Q4WEEKS
  7. VEDOLIZUMAB [Suspect]
     Active Substance: VEDOLIZUMAB
  8. ASACOL [Concomitant]
     Active Substance: MESALAMINE

REACTIONS (12)
  - Crohn^s disease [Unknown]
  - General physical health deterioration [Unknown]
  - Frequent bowel movements [Unknown]
  - Diarrhoea [Unknown]
  - Feeling hot [Unknown]
  - Muscle spasms [Unknown]
  - Pain in extremity [Unknown]
  - Off label use [Unknown]
  - Feeling abnormal [Unknown]
  - Large intestine polyp [Unknown]
  - Gastrointestinal scarring [Unknown]
  - Influenza [Unknown]

NARRATIVE: CASE EVENT DATE: 20220602
